FAERS Safety Report 12845235 (Version 1)
Quarter: 2016Q4

REPORT INFORMATION
  Report Type: Report from Study
  Country: None (occurrence: BR)
  Receive Date: 20161013
  Receipt Date: 20161013
  Transmission Date: 20170207
  Serious: Yes (Other)
  Sender: FDA-Public Use
  Company Number: BR-ABBVIE-16K-020-1745465-00

PATIENT
  Age: 61 Year
  Sex: Female
  Weight: 83 kg

DRUGS (7)
  1. HUMIRA [Suspect]
     Active Substance: ADALIMUMAB
     Indication: PSORIATIC ARTHROPATHY
     Route: 058
     Dates: start: 20140918, end: 201608
  2. RIVOTRIL [Suspect]
     Active Substance: CLONAZEPAM
     Indication: INSOMNIA
     Route: 048
  3. FOLIC ACID. [Concomitant]
     Active Substance: FOLIC ACID
     Indication: TOXICITY TO VARIOUS AGENTS
     Route: 048
     Dates: start: 2014
  4. OMEPRAZOLE. [Concomitant]
     Active Substance: OMEPRAZOLE
     Indication: GASTRIC DISORDER
     Route: 048
     Dates: start: 2013, end: 201604
  5. OMEPRAZOLE. [Concomitant]
     Active Substance: OMEPRAZOLE
     Indication: PROPHYLAXIS
  6. ARTROSIL [Concomitant]
     Active Substance: KETOPROFEN LYSINE
     Indication: PAIN
     Route: 048
     Dates: start: 2015
  7. METHOTREXATE. [Concomitant]
     Active Substance: METHOTREXATE
     Indication: PSORIATIC ARTHROPATHY
     Route: 048
     Dates: start: 2014

REACTIONS (37)
  - Dengue fever [Recovering/Resolving]
  - Blood glucose abnormal [Recovering/Resolving]
  - Haemangioma of bone [Unknown]
  - Intervertebral disc degeneration [Unknown]
  - Intervertebral disc disorder [Unknown]
  - Splenomegaly [Unknown]
  - Pyrexia [Recovered/Resolved]
  - Dyspnoea [Recovered/Resolved]
  - Glaucoma [Not Recovered/Not Resolved]
  - Rash generalised [Recovered/Resolved]
  - Intervertebral disc protrusion [Unknown]
  - Cough [Not Recovered/Not Resolved]
  - Catarrh [Not Recovered/Not Resolved]
  - Pharyngitis [Recovering/Resolving]
  - Urinary tract infection [Recovering/Resolving]
  - Laryngeal injury [Not Recovered/Not Resolved]
  - Ovarian cyst [Not Recovered/Not Resolved]
  - Platelet count decreased [Unknown]
  - Lipoma [Recovered/Resolved]
  - Hepatic steatosis [Recovering/Resolving]
  - Blister [Not Recovered/Not Resolved]
  - Alopecia [Not Recovered/Not Resolved]
  - Viral infection [Recovering/Resolving]
  - Psoriasis [Not Recovered/Not Resolved]
  - Cerebral disorder [Not Recovered/Not Resolved]
  - Sputum discoloured [Not Recovered/Not Resolved]
  - Panniculitis [Recovered/Resolved]
  - Furuncle [Recovered/Resolved]
  - Exostosis [Not Recovered/Not Resolved]
  - Ovarian cyst [Unknown]
  - Angiopathy [Not Recovered/Not Resolved]
  - Spondylitis [Unknown]
  - Red blood cell count decreased [Unknown]
  - Vascular rupture [Not Recovered/Not Resolved]
  - Unevaluable event [Not Recovered/Not Resolved]
  - Weight decreased [Recovered/Resolved]
  - Pollakiuria [Not Recovered/Not Resolved]

NARRATIVE: CASE EVENT DATE: 2014
